FAERS Safety Report 8729745 (Version 2)
Quarter: 2012Q4

REPORT INFORMATION
  Report Type: 
  Country: AU (occurrence: AU)
  Receive Date: 20120817
  Receipt Date: 20120928
  Transmission Date: 20130627
  Serious: Yes (Other)
  Sender: FDA-Public Use
  Company Number: AU-ROCHE-1101959

PATIENT
  Sex: Male

DRUGS (5)
  1. RIBAVIRIN [Suspect]
     Indication: PRODUCT USED FOR UNKNOWN INDICATION
     Dosage: started in 2001/2002
     Route: 065
  2. RIBAVIRIN [Suspect]
     Route: 065
     Dates: start: 2005
  3. RIBAVIRIN [Suspect]
     Route: 065
  4. PEGASYS [Suspect]
     Indication: PRODUCT USED FOR UNKNOWN INDICATION
     Dosage: started in 2001/2002
     Route: 065
  5. PEGASYS [Suspect]
     Route: 065
     Dates: start: 2005

REACTIONS (4)
  - Haemolysis [Unknown]
  - Anaemia [Unknown]
  - Agitation [Unknown]
  - Anxiety [Unknown]
